FAERS Safety Report 9991655 (Version 2)
Quarter: 2014Q1

REPORT INFORMATION
  Report Type: Spontaneous
  Country: DE (occurrence: DE)
  Receive Date: 20140310
  Receipt Date: 20140317
  Transmission Date: 20141002
  Serious: Yes (Hospitalization, Other)
  Sender: FDA-Public Use
  Company Number: DE-BAYER-2014-033163

PATIENT
  Age: 31 Year
  Sex: Female

DRUGS (8)
  1. YASMIN [Suspect]
     Dosage: 1 DF, QD
     Route: 048
     Dates: start: 2007, end: 2014
  2. LAMOTRIGIN [Interacting]
     Indication: EPILEPSY
     Route: 048
  3. VALPROAT [Concomitant]
     Indication: EPILEPSY
     Dosage: UNK
     Route: 048
  4. LYRICA [Concomitant]
     Indication: EPILEPSY
     Dosage: 25 MG, BID
     Route: 048
  5. FORMOTEROL [Concomitant]
     Route: 039
  6. ANAFRANIL [Concomitant]
     Dosage: 75 MG, QD
     Route: 048
  7. CITALOPRAM [Concomitant]
     Route: 048
  8. ABILIFY [Concomitant]
     Dosage: 10 MG, QD
     Route: 048

REACTIONS (9)
  - Labelled drug-drug interaction medication error [Recovered/Resolved]
  - Psychogenic seizure [Recovered/Resolved]
  - Tremor [Recovered/Resolved]
  - Loss of consciousness [Recovered/Resolved]
  - Anxiety [Not Recovered/Not Resolved]
  - Depressed mood [Not Recovered/Not Resolved]
  - Apathy [Not Recovered/Not Resolved]
  - Affect lability [Not Recovered/Not Resolved]
  - Hospitalisation [None]
